FAERS Safety Report 8005028-0 (Version None)
Quarter: 2011Q4

REPORT INFORMATION
  Report Type: 
  Country: None (occurrence: None)
  Receive Date: 20111220
  Receipt Date: 20111209
  Transmission Date: 20120403
  Serious: Yes (Hospitalization)
  Sender: FDA-Public Use
  Company Number: 2011SP054029

PATIENT
  Age: 27 Year
  Sex: Female

DRUGS (4)
  1. LEVOPRAID [Concomitant]
  2. REMERON [Suspect]
     Indication: DEPRESSION
     Dosage: 15 MG,,PO,
     Route: 048
     Dates: start: 20111002, end: 20111002
  3. VALPROATE SODIUM [Suspect]
     Indication: DEPRESSION
     Dosage: 500 MG,,PO, 12 DF,,PO
     Route: 048
     Dates: start: 20111002, end: 20111002
  4. PAROXETINE [Suspect]
     Indication: DEPRESSION
     Dosage: 20 MG,,PO, 12 DF,,PO
     Route: 048
     Dates: start: 20111002, end: 20111002

REACTIONS (3)
  - BRADYPHRENIA [None]
  - MULTIPLE DRUG OVERDOSE INTENTIONAL [None]
  - INTENTIONAL SELF-INJURY [None]
